FAERS Safety Report 19963216 (Version 1)
Quarter: 2021Q4

REPORT INFORMATION
  Report Type: Spontaneous
  Country: US (occurrence: US)
  Receive Date: 20211013
  Receipt Date: 20211013
  Transmission Date: 20220303
  Serious: No
  Sender: FDA-Public Use
  Company Number: None

PATIENT
  Sex: Female

DRUGS (21)
  1. VERZENIO [Suspect]
     Active Substance: ABEMACICLIB
     Indication: Breast cancer female
  2. ALPHA LIPOIC ACID [Concomitant]
     Active Substance: .ALPHA.-LIPOIC ACID
  3. ARMOUR THYROID [Concomitant]
     Active Substance: THYROID, PORCINE
  4. B12 FAST DISSOLVE [Concomitant]
  5. B6 NATURAL [Concomitant]
  6. BIOTIN [Concomitant]
     Active Substance: BIOTIN
  7. CANNABIS SATIVA SUBSP. INDICA TOP [Concomitant]
     Active Substance: CANNABIS SATIVA SUBSP. INDICA TOP
  8. COENZYME Q10 [Concomitant]
     Active Substance: DIETARY SUPPLEMENT\UBIDECARENONE
  9. PRASTERONE [Concomitant]
     Active Substance: PRASTERONE
  10. ELIQUIS [Concomitant]
     Active Substance: APIXABAN
  11. FLAX [Concomitant]
  12. LYSINE [Concomitant]
     Active Substance: LYSINE
  13. MAGNESIUM GLUCONATE [Concomitant]
     Active Substance: MAGNESIUM GLUCONATE
  14. MELATONIN ER [Concomitant]
  15. DIETARY SUPPLEMENT\HERBALS\MILK THISTLE [Concomitant]
     Active Substance: DIETARY SUPPLEMENT\HERBALS\MILK THISTLE
  16. NALTREXONE [Concomitant]
     Active Substance: NALTREXONE
  17. OCCUVITE [Concomitant]
  18. OSTEO-ELITE [Concomitant]
  19. PROBIOTIC BLEND [Concomitant]
  20. VITAMIN C [Concomitant]
     Active Substance: ASCORBIC ACID
  21. VITAMIN E [Concomitant]
     Active Substance: .ALPHA.-TOCOPHEROL

REACTIONS (2)
  - Diarrhoea [None]
  - Metastases to breast [None]
